FAERS Safety Report 5824862-6 (Version None)
Quarter: 2008Q3

REPORT INFORMATION
  Report Type: 
  Country: None (occurrence: None)
  Receive Date: 20080728
  Receipt Date: 20080725
  Transmission Date: 20090109
  Serious: Yes (Death)
  Sender: FDA-Public Use
  Company Number: US-BOEHRINGER INGELHEIM GMBH, GERMANY-2008-BP-10687BP

PATIENT
  Sex: Male
  Weight: 84 kg

DRUGS (1)
  1. SPIRIVA [Suspect]

REACTIONS (2)
  - LUNG NEOPLASM MALIGNANT [None]
  - METASTASES TO CENTRAL NERVOUS SYSTEM [None]
